FAERS Safety Report 7390390-2 (Version None)
Quarter: 2011Q2

REPORT INFORMATION
  Report Type: 
  Country: None (occurrence: None)
  Receive Date: 20110401
  Receipt Date: 20110328
  Transmission Date: 20111010
  Serious: Yes (Death, Hospitalization, Disabling)
  Sender: FDA-Public Use
  Company Number: PHHY2010US85921

PATIENT
  Sex: Female
  Weight: 61 kg

DRUGS (5)
  1. GLEEVEC [Suspect]
     Indication: CHRONIC MYELOID LEUKAEMIA
     Dosage: 400 MG, UNK
     Route: 048
     Dates: start: 20100118, end: 20101215
  2. ASPIRIN [Concomitant]
  3. ENALAPRIL [Concomitant]
  4. ACTOS [Concomitant]
  5. PRANDIN [Concomitant]

REACTIONS (6)
  - MUSCULAR WEAKNESS [None]
  - CORONARY ARTERY DISEASE [None]
  - LIMB DISCOMFORT [None]
  - AORTIC STENOSIS [None]
  - PAIN IN EXTREMITY [None]
  - BLOOD CREATININE INCREASED [None]
